FAERS Safety Report 26143828 (Version 1)
Quarter: 2025Q4

REPORT INFORMATION
  Report Type: Spontaneous
  Country: US (occurrence: US)
  Receive Date: 20251211
  Receipt Date: 20251211
  Transmission Date: 20260118
  Serious: Yes (Other)
  Sender: ALEXION PHARMACEUTICALS
  Company Number: US-AstraZeneca-CH-01010705A

PATIENT
  Sex: Male

DRUGS (1)
  1. BREZTRI [Suspect]
     Active Substance: BUDESONIDE\FORMOTEROL\GLYCOPYRROLATE
     Route: 065

REACTIONS (10)
  - Lung neoplasm malignant [Unknown]
  - Dyspnoea [Unknown]
  - Confusional state [Unknown]
  - Allergy to vaccine [Unknown]
  - Insomnia [Unknown]
  - Viral infection [Unknown]
  - Device issue [Unknown]
  - Accident at work [Unknown]
  - Device delivery system issue [Unknown]
  - Device use issue [Unknown]
